FAERS Safety Report 9321384 (Version 1)
Quarter: 2013Q2

REPORT INFORMATION
  Report Type: Spontaneous
  Country: PT (occurrence: None)
  Receive Date: 20130528
  Receipt Date: 20130528
  Transmission Date: 20140414
  Serious: Yes (Death, Other)
  Sender: FDA-Public Use
  Company Number: 2013P1006055

PATIENT
  Age: 32 Year
  Sex: Male

DRUGS (10)
  1. DIAZEPAM [Suspect]
  2. LORAZEPAM [Suspect]
  3. RISPERIDONE [Suspect]
  4. HALOPERIDOL [Suspect]
  5. OLANZAPINE [Suspect]
  6. QUETIAPINE [Suspect]
  7. FLUOXETINE [Suspect]
  8. PAROXETINE [Suspect]
  9. BROMAZEPAM [Suspect]
  10. NORDIAZEPAM [Suspect]
     Route: 048

REACTIONS (5)
  - Acute pulmonary oedema [None]
  - Visceral congestion [None]
  - Toxicity to various agents [None]
  - Completed suicide [None]
  - Intentional overdose [None]
